FAERS Safety Report 25509976 (Version 3)
Quarter: 2025Q4

REPORT INFORMATION
  Report Type: Report from Study
  Country: PR (occurrence: PR)
  Receive Date: 20250703
  Receipt Date: 20251006
  Transmission Date: 20260117
  Serious: Yes (Other)
  Sender: BAYER HEALTHCARE PHARMACEUTICALS INC.
  Company Number: PR-BAYER-2025A087850

PATIENT
  Age: 65 Year
  Sex: Male
  Weight: 117.91 kg

DRUGS (2)
  1. ADEMPAS [Suspect]
     Active Substance: RIOCIGUAT
     Indication: Pulmonary arterial hypertension
     Dosage: UNK
  2. ADEMPAS [Suspect]
     Active Substance: RIOCIGUAT
     Indication: Pulmonary arterial hypertension
     Dosage: 1 MG, TID
     Route: 048
     Dates: start: 202504

REACTIONS (5)
  - Fall [None]
  - Dizziness [Not Recovered/Not Resolved]
  - Fatigue [None]
  - Asthenia [None]
  - Somnolence [None]

NARRATIVE: CASE EVENT DATE: 20250101
